FAERS Safety Report 4802427-2 (Version None)
Quarter: 2005Q4

REPORT INFORMATION
  Report Type: 
  Country: None (occurrence: None)
  Receive Date: 20051013
  Receipt Date: 20050930
  Transmission Date: 20060501
  Serious: Yes (Other)
  Sender: FDA-Public Use
  Company Number: 2005136140

PATIENT
  Age: 44 Year
  Sex: Female
  Weight: 46.2669 kg

DRUGS (5)
  1. XANAX [Suspect]
     Indication: BACK INJURY
     Dosage: 6 MG (2 MG, 3 IN 1 D)
     Dates: start: 20050801
  2. XANAX [Suspect]
     Indication: NECK INJURY
     Dosage: 6 MG (2 MG, 3 IN 1 D)
     Dates: start: 20050801
  3. ALPRAZOLAM [Suspect]
     Indication: BACK INJURY
     Dosage: 6 MG (1 MG, 3 IN 1 D)
     Dates: start: 20040401, end: 20050801
  4. ROBAXIN [Concomitant]
  5. HYDROCODONE (HYDROCODONE) [Concomitant]

REACTIONS (20)
  - ABDOMINAL PAIN [None]
  - CHEST PAIN [None]
  - COGNITIVE DISORDER [None]
  - DIARRHOEA [None]
  - DIFFICULTY IN WALKING [None]
  - DRUG INEFFECTIVE [None]
  - DYSGEUSIA [None]
  - EYE SWELLING [None]
  - EYELID OEDEMA [None]
  - HEADACHE [None]
  - NAUSEA [None]
  - NERVOUSNESS [None]
  - PAIN [None]
  - PAIN IN EXTREMITY [None]
  - PARANOIA [None]
  - PHARMACEUTICAL PRODUCT COMPLAINT [None]
  - POOR QUALITY DRUG ADMINISTERED [None]
  - SKIN DISCOLOURATION [None]
  - VISION BLURRED [None]
  - WRONG TECHNIQUE IN DRUG USAGE PROCESS [None]
